FAERS Safety Report 4383410-0 (Version None)
Quarter: 2004Q2

REPORT INFORMATION
  Report Type: 
  Country: None (occurrence: None)
  Receive Date: 20040618
  Receipt Date: 20040610
  Transmission Date: 20050107
  Serious: Yes (Hospitalization)
  Sender: FDA-Public Use
  Company Number: STA-AE-04-MTX-260

PATIENT
  Age: 70 Year
  Sex: Female

DRUGS (9)
  1. METHOTREXATE [Suspect]
     Indication: RHEUMATOID ARTHRITIS
     Dosage: 25 MG 1 X PER 5 DAY
  2. LEVOTHYROXINE SODIUM [Concomitant]
  3. NIFEDIPINE [Concomitant]
  4. TICLOPIDINE (TICLOPIDINE) [Concomitant]
  5. FERROUS SULFATE TAB [Concomitant]
  6. FOLIC ACID [Concomitant]
  7. METHYLPREDNISOLONE [Concomitant]
  8. CALCIUIM (CALCIUM) [Concomitant]
  9. ALFACALCIDOL (ALFACALCIDOL) [Concomitant]

REACTIONS (5)
  - DIARRHOEA [None]
  - PANCYTOPENIA [None]
  - PARKINSON'S DISEASE [None]
  - RENAL FAILURE ACUTE [None]
  - STOMATITIS [None]
